FAERS Safety Report 4730485-2 (Version None)
Quarter: 2005Q3

REPORT INFORMATION
  Report Type: 
  Country: None (occurrence: None)
  Receive Date: 20050725
  Receipt Date: 20050519
  Transmission Date: 20060218
  Serious: No
  Sender: FDA-Public Use
  Company Number: USA050598578

PATIENT
  Age: 10 Year
  Sex: Male

DRUGS (2)
  1. STRATTERA [Suspect]
     Dosage: 25 MG DAY
     Dates: start: 20050518
  2. CELEXA [Concomitant]

REACTIONS (2)
  - RETCHING [None]
  - VOMITING [None]
